FAERS Safety Report 16498360 (Version 1)
Quarter: 2019Q2

REPORT INFORMATION
  Report Type: Spontaneous
  Country: US (occurrence: US)
  Receive Date: 20190629
  Receipt Date: 20190629
  Transmission Date: 20190711
  Serious: No
  Sender: FDA-Public Use
  Company Number: US-TEVA-2019-US-1061517

PATIENT
  Age: 67 Year
  Sex: Male

DRUGS (1)
  1. POTASSIUM CITRATE EXTENDED-RELEASE TABLETS [Suspect]
     Active Substance: POTASSIUM CITRATE
     Indication: NEPHROLITHIASIS
     Dosage: POTASSIUM CITRATE,10 MEQ
     Dates: start: 20190525

REACTIONS (3)
  - Product solubility abnormal [Unknown]
  - Product residue present [Unknown]
  - Wrong technique in product usage process [Unknown]

NARRATIVE: CASE EVENT DATE: 20190604
